FAERS Safety Report 20078176 (Version 2)
Quarter: 2021Q4

REPORT INFORMATION
  Report Type: Spontaneous
  Country: US (occurrence: US)
  Receive Date: 20211117
  Receipt Date: 20211118
  Transmission Date: 20220304
  Serious: Yes (Other)
  Sender: FDA-Public Use
  Company Number: US-JNJFOC-20211118890

PATIENT

DRUGS (1)
  1. BENADRYL [Suspect]
     Active Substance: DIPHENHYDRAMINE HYDROCHLORIDE
     Indication: Product used for unknown indication
     Route: 045

REACTIONS (3)
  - Haemorrhage [Unknown]
  - Intentional product misuse [Unknown]
  - Incorrect route of product administration [Unknown]
